FAERS Safety Report 7564932-8 (Version None)
Quarter: 2011Q2

REPORT INFORMATION
  Report Type: 
  Country: None (occurrence: None)
  Receive Date: 20110622
  Receipt Date: 20110609
  Transmission Date: 20111010
  Serious: Yes (Other)
  Sender: FDA-Public Use
  Company Number: US-MYLANLABS-2011S1003811

PATIENT
  Age: 50 Year
  Sex: Male
  Weight: 62.59 kg

DRUGS (6)
  1. COLACE [Concomitant]
  2. LITHIUM [Concomitant]
  3. CHEMOTHERAPEUTICS [Suspect]
  4. CLOZAPINE [Suspect]
     Indication: SCHIZOPHRENIA, PARANOID TYPE
     Route: 048
     Dates: end: 20110215
  5. CLOZAPINE [Suspect]
     Route: 048
     Dates: start: 20110501
  6. LACTULOSE [Concomitant]

REACTIONS (2)
  - GRANULOCYTOPENIA [None]
  - LEUKOPENIA [None]
